FAERS Safety Report 16477382 (Version 2)
Quarter: 2019Q3

REPORT INFORMATION
  Report Type: Report from Study
  Country: US (occurrence: US)
  Receive Date: 20190626
  Receipt Date: 20190704
  Transmission Date: 20191004
  Serious: Yes (Hospitalization)
  Sender: FDA-Public Use
  Company Number: PHHO2019US006714

PATIENT
  Age: 18 Year
  Sex: Male

DRUGS (8)
  1. METHOTREXATE. [Suspect]
     Active Substance: METHOTREXATE
     Indication: ACUTE LYMPHOCYTIC LEUKAEMIA
     Dosage: 10500 MG, EVERY 24 HOURS
     Route: 042
     Dates: start: 20190430, end: 20190501
  2. MERCAPTOPURINE. [Suspect]
     Active Substance: MERCAPTOPURINE
     Indication: ACUTE LYMPHOCYTIC LEUKAEMIA
     Dosage: 450 MG, (75 MG X 1(S), 50 X 6 (M.S))
     Route: 048
     Dates: start: 20190430, end: 20190513
  3. LEUCOVORIN. [Suspect]
     Active Substance: LEUCOVORIN
     Dosage: 750 MG, Q6H
     Route: 042
     Dates: start: 20190606
  4. INC424A [Suspect]
     Active Substance: RUXOLITINIB
     Indication: ACUTE LYMPHOCYTIC LEUKAEMIA
     Dosage: 150 MG, BID
     Route: 048
     Dates: start: 20190430
  5. METHOTREXATE. [Suspect]
     Active Substance: METHOTREXATE
     Dosage: 10500 MG, EVERY 24 HOURS
     Route: 042
     Dates: start: 20190604
  6. MERCAPTOPURINE. [Suspect]
     Active Substance: MERCAPTOPURINE
     Dosage: 375 MG, UNK
     Route: 048
     Dates: start: 20190604, end: 20190610
  7. LEUCOVORIN. [Suspect]
     Active Substance: LEUCOVORIN
     Indication: ACUTE LYMPHOCYTIC LEUKAEMIA
     Dosage: 896 MG, Q6H
     Route: 042
     Dates: start: 20190502, end: 20190509
  8. VINCRISTINE [Suspect]
     Active Substance: VINCRISTINE
     Indication: PRODUCT USED FOR UNKNOWN INDICATION
     Dosage: 2 MG, ONCE/SINGLE
     Route: 042
     Dates: start: 20190604

REACTIONS (1)
  - Febrile neutropenia [Recovered/Resolved]

NARRATIVE: CASE EVENT DATE: 20190610
